FAERS Safety Report 5217937-6 (Version None)
Quarter: 2007Q1

REPORT INFORMATION
  Report Type: 
  Country: None (occurrence: None)
  Receive Date: 20061130
  Receipt Date: 20060919
  Transmission Date: 20070707
  Serious: Yes (Other)
  Sender: FDA-Public Use
  Company Number: US200609004776

PATIENT
  Age: 32 Year
  Sex: Female
  Weight: 131.1 kg

DRUGS (3)
  1. ZYPREXA [Suspect]
     Dates: start: 19970101
  2. ZYPREXA [Suspect]
     Dates: start: 19990101
  3. HALODOL (HALOPERIDOL) [Concomitant]

REACTIONS (2)
  - JOINT INJURY [None]
  - WEIGHT INCREASED [None]
